FAERS Safety Report 9723852 (Version 1)
Quarter: 2013Q4

REPORT INFORMATION
  Report Type: Spontaneous
  Country: US (occurrence: US)
  Receive Date: 20131202
  Receipt Date: 20131202
  Transmission Date: 20140711
  Serious: No
  Sender: FDA-Public Use
  Company Number: US-AMGEN-USASP2013078718

PATIENT
  Age: 44 Year
  Sex: Female

DRUGS (8)
  1. ENBREL [Suspect]
     Indication: RHEUMATOID ARTHRITIS
     Dosage: 50 MG, QWK
     Route: 065
  2. PLAQUENIL                          /00072603/ [Concomitant]
     Dosage: 200 MG, BID
  3. HYDROCHLOROTHIAZIDE [Concomitant]
     Dosage: 25 MG, QD
  4. OMEPRAZOLE [Concomitant]
     Dosage: 20 MG, QD
  5. PREDNISONE [Concomitant]
     Dosage: 510 MG, QD
  6. SIMETHICONE [Concomitant]
     Dosage: 80 MG, TID
  7. ALEVE [Concomitant]
     Dosage: UNK UNK, AS NECESSARY
  8. IBUPROFEN [Concomitant]
     Dosage: UNK UNK, AS NECESSARY

REACTIONS (1)
  - Injection site pain [Unknown]
